FAERS Safety Report 15999330 (Version 20)
Quarter: 2020Q3

REPORT INFORMATION
  Report Type: Spontaneous
  Country: US (occurrence: US)
  Receive Date: 20190225
  Receipt Date: 20200928
  Transmission Date: 20201102
  Serious: No
  Sender: FDA-Public Use
  Company Number: US-PFIZER INC-2019071292

PATIENT
  Age: 43 Year
  Sex: Female
  Weight: 73 kg

DRUGS (4)
  1. CELEBREX [Suspect]
     Active Substance: CELECOXIB
     Indication: CYSTITIS INTERSTITIAL
  2. CELEBREX [Suspect]
     Active Substance: CELECOXIB
     Indication: MIGRAINE
     Dosage: 100 MG, UNK
  3. CELEBREX [Suspect]
     Active Substance: CELECOXIB
     Indication: FIBROMYALGIA
     Dosage: 200 MG, 1X/DAY
     Dates: start: 2001
  4. CELEBREX [Suspect]
     Active Substance: CELECOXIB
     Indication: BLADDER PAIN

REACTIONS (8)
  - Malaise [Unknown]
  - Musculoskeletal discomfort [Recovered/Resolved]
  - Off label use [Unknown]
  - Condition aggravated [Unknown]
  - Anxiety [Unknown]
  - Headache [Recovered/Resolved]
  - Product use in unapproved indication [Unknown]
  - Intentional product misuse [Unknown]

NARRATIVE: CASE EVENT DATE: 2001
